FAERS Safety Report 11200542 (Version 4)
Quarter: 2015Q3

REPORT INFORMATION
  Report Type: Report from Study
  Country: AR (occurrence: AR)
  Receive Date: 20150618
  Receipt Date: 20150924
  Transmission Date: 20151125
  Serious: No
  Sender: FDA-Public Use
  Company Number: AR-INCYTE CORPORATION-2015IN002692

PATIENT
  Age: 61 Year
  Sex: Male

DRUGS (2)
  1. JAKAFI [Suspect]
     Active Substance: RUXOLITINIB
     Indication: MYELOFIBROSIS
     Dosage: 5 MG, BID
     Route: 065
     Dates: start: 20141001
  2. JAKAFI [Suspect]
     Active Substance: RUXOLITINIB
     Dosage: 5 MG, QID
     Route: 065
     Dates: start: 201508

REACTIONS (8)
  - Haematoma [Recovering/Resolving]
  - Burning sensation [Recovered/Resolved]
  - Fall [Recovering/Resolving]
  - Insomnia [Recovered/Resolved]
  - Nervousness [Recovered/Resolved]
  - Splenomegaly [Recovering/Resolving]
  - Erythema [Recovered/Resolved]
  - Drug ineffective [Unknown]

NARRATIVE: CASE EVENT DATE: 201505
